FAERS Safety Report 7121194-3 (Version None)
Quarter: 2010Q4

REPORT INFORMATION
  Report Type: 
  Country: None (occurrence: None)
  Receive Date: 20101122
  Receipt Date: 20101122
  Transmission Date: 20110411
  Serious: Yes (Other)
  Sender: FDA-Public Use
  Company Number: None

PATIENT
  Age: 58 Year
  Sex: Female
  Weight: 53.0709 kg

DRUGS (4)
  1. LEVOTHYROXINE SODIUM [Suspect]
     Indication: GOITRE
     Dosage: 100 MCG. DAILY PO
     Route: 048
     Dates: start: 20100120, end: 20100306
  2. LEVOTHYROXINE SODIUM [Suspect]
     Indication: HYPOTHYROIDISM
     Dosage: 100 MCG. DAILY PO
     Route: 048
     Dates: start: 20100120, end: 20100306
  3. LEVOTHYROXINE SODIUM [Suspect]
     Indication: RAYNAUD'S PHENOMENON
     Dosage: 100 MCG. DAILY PO
     Route: 048
     Dates: start: 20100120, end: 20100306
  4. LEVOTHYROXINE SODIUM [Suspect]
     Dosage: 75 MCG. DAILY PO
     Route: 048
     Dates: start: 20100307, end: 20100318

REACTIONS (15)
  - ASTHENIA [None]
  - FATIGUE [None]
  - FEELING ABNORMAL [None]
  - FEELING COLD [None]
  - FEELING OF BODY TEMPERATURE CHANGE [None]
  - HEADACHE [None]
  - HYPERSENSITIVITY [None]
  - HYPERTHYROIDISM [None]
  - HYPOTHYROIDISM [None]
  - MUSCLE SPASMS [None]
  - MUSCULAR WEAKNESS [None]
  - NAUSEA [None]
  - OROPHARYNGEAL PAIN [None]
  - PAIN [None]
  - REACTION TO AZO-DYES [None]
